FAERS Safety Report 9845463 (Version 1)
Quarter: 2014Q1

REPORT INFORMATION
  Report Type: Spontaneous
  Country: US (occurrence: None)
  Receive Date: 20140123
  Receipt Date: 20140123
  Transmission Date: 20141002
  Serious: Yes (Disabling, Other)
  Sender: FDA-Public Use
  Company Number: None

PATIENT
  Age: 57 Year
  Sex: Female
  Weight: 58.97 kg

DRUGS (1)
  1. FLUTICASONE [Suspect]
     Indication: MULTIPLE ALLERGIES
     Dosage: 1 SPRAY EACH NOSTRIL 2X/DAY  TWICE DAILY --
     Dates: start: 20140116, end: 20140116

REACTIONS (10)
  - Dizziness [None]
  - Nasal congestion [None]
  - Thirst [None]
  - Nasal discomfort [None]
  - Nasal discomfort [None]
  - Thirst [None]
  - Dyspnoea [None]
  - Wheezing [None]
  - Chest discomfort [None]
  - Headache [None]
